FAERS Safety Report 6331919-2 (Version None)
Quarter: 2009Q3

REPORT INFORMATION
  Report Type: 
  Country: None (occurrence: None)
  Receive Date: 20090826
  Receipt Date: 20090811
  Transmission Date: 20100115
  Serious: Yes (Other)
  Sender: FDA-Public Use
  Company Number: 2009S1000084

PATIENT
  Age: 3 Month
  Sex: Male
  Weight: 3.56 kg

DRUGS (4)
  1. INOMAX [Suspect]
     Indication: PULMONARY ARTERIAL PRESSURE INCREASED
     Dosage: 20 PPM; CONT; INH, 15 PPM; CONT; INH, 10 PPM; CONT; INH, 1 PPM; CONT; INH
     Route: 055
     Dates: start: 20090803, end: 20090808
  2. INOMAX [Suspect]
     Indication: PULMONARY ARTERIAL PRESSURE INCREASED
     Dosage: 20 PPM; CONT; INH, 15 PPM; CONT; INH, 10 PPM; CONT; INH, 1 PPM; CONT; INH
     Route: 055
     Dates: start: 20090808, end: 20090808
  3. INOMAX [Suspect]
     Indication: PULMONARY ARTERIAL PRESSURE INCREASED
     Dosage: 20 PPM; CONT; INH, 15 PPM; CONT; INH, 10 PPM; CONT; INH, 1 PPM; CONT; INH
     Route: 055
     Dates: start: 20090808, end: 20090808
  4. INOMAX [Suspect]
     Indication: PULMONARY ARTERIAL PRESSURE INCREASED
     Dosage: 20 PPM; CONT; INH, 15 PPM; CONT; INH, 10 PPM; CONT; INH, 1 PPM; CONT; INH
     Route: 055
     Dates: start: 20090808, end: 20090809

REACTIONS (1)
  - THROMBOCYTOPENIA [None]
